FAERS Safety Report 7625320-9 (Version None)
Quarter: 2011Q3

REPORT INFORMATION
  Report Type: 
  Country: None (occurrence: None)
  Receive Date: 20110721
  Receipt Date: 20110719
  Transmission Date: 20111222
  Serious: No
  Sender: FDA-Public Use
  Company Number: US-PFIZER INC-2011086793

PATIENT
  Sex: Male
  Weight: 63.4 kg

DRUGS (8)
  1. ZETIA [Concomitant]
     Dosage: UNK
  2. GABAPENTIN [Suspect]
     Indication: NEURALGIA
     Dosage: 100 MG, 3X/DAY
     Route: 048
     Dates: start: 20110201
  3. LOPRESSOR [Concomitant]
     Dosage: UNK
  4. LISINOPRIL [Concomitant]
     Dosage: UNK
  5. NORVASC [Concomitant]
     Dosage: UNK
  6. OXYBUTYNIN [Concomitant]
     Dosage: UNK
  7. PLAVIX [Concomitant]
     Dosage: UNK
  8. PRINIVIL [Concomitant]
     Dosage: UNK

REACTIONS (3)
  - ALOPECIA [None]
  - PAIN [None]
  - ANAEMIA [None]
